FAERS Safety Report 21507675 (Version 2)
Quarter: 2022Q4

REPORT INFORMATION
  Report Type: Report from Study
  Country: US (occurrence: US)
  Receive Date: 20221026
  Receipt Date: 20221116
  Transmission Date: 20230113
  Serious: No
  Sender: FDA-Public Use
  Company Number: US-ABBVIE-4156848

PATIENT
  Sex: Female

DRUGS (5)
  1. VENCLEXTA [Suspect]
     Active Substance: VENETOCLAX
     Indication: Chronic lymphocytic leukaemia
     Route: 048
  2. VENCLEXTA [Suspect]
     Active Substance: VENETOCLAX
     Indication: Chronic lymphocytic leukaemia
     Route: 048
  3. PREDNISONE [Concomitant]
     Active Substance: PREDNISONE
     Indication: Product used for unknown indication
     Dosage: EVERY MONDAY, WEDNESDAY,FRIDAY
  4. PREDNISONE [Concomitant]
     Active Substance: PREDNISONE
     Indication: Product used for unknown indication
     Dosage: EVERY MONDAY, WEDNESDAY,FRIDAY/ HALF
  5. GAZYVA [Suspect]
     Active Substance: OBINUTUZUMAB
     Indication: Product used for unknown indication

REACTIONS (5)
  - Platelet count decreased [Not Recovered/Not Resolved]
  - Lymphocyte count abnormal [Unknown]
  - Contusion [Unknown]
  - Haemorrhage [Unknown]
  - Gastric disorder [Unknown]

NARRATIVE: CASE EVENT DATE: 20220101
